FAERS Safety Report 25563488 (Version 1)
Quarter: 2025Q3

REPORT INFORMATION
  Report Type: Report from Study
  Country: EU (occurrence: EU)
  Receive Date: 20250716
  Receipt Date: 20250716
  Transmission Date: 20251021
  Serious: Yes (Other)
  Sender: TEVA
  Company Number: EU-TEVA-VS-3350229

PATIENT
  Age: 80 Year
  Sex: Female

DRUGS (10)
  1. TERIPARATIDE [Suspect]
     Active Substance: TERIPARATIDE
     Indication: Osteoporosis
     Route: 065
     Dates: start: 20250611
  2. BISOPROLOL [Concomitant]
     Active Substance: BISOPROLOL
     Indication: Cardiac valve disease
     Dosage: DOSE: ONE IN THE MORNING AND HALF AT NIGHT; START DATE: SOME TIME AGO; END DATE: CONTINUES
  3. DIGOXIN [Concomitant]
     Active Substance: DIGOXIN
     Indication: Cardiac valve disease
  4. FUROSEMIDE [Concomitant]
     Active Substance: FUROSEMIDE
     Indication: Cardiac valve disease
  5. EZETIMIBE [Concomitant]
     Active Substance: EZETIMIBE
     Indication: Hypercholesterolaemia
     Dosage: DOSE: ONE IN THE MORNING; START DATE: SOME TIME AGO; END DATE: CONTINUES
  6. PRAVASTATIN [Concomitant]
     Active Substance: PRAVASTATIN
     Indication: Hypercholesterolaemia
     Dosage: DOSE: ONE AT NIGHT; START DATE: SOME TIME AGO; END DATE: CONTINUES
  7. OMEPRAZOLE [Concomitant]
     Active Substance: OMEPRAZOLE
     Indication: Gastrointestinal disorder prophylaxis
     Dosage: DOSE: ONE PER DAY; START DATE: SOME TIME AGO; END DATE: CONTINUES
  8. EDOXABAN TOSYLATE [Concomitant]
     Active Substance: EDOXABAN TOSYLATE
     Indication: Cardiac valve disease
     Dosage: LIXIANA 30, DOSE: ONE AT NIGHT; START DATE: SOME TIME AGO; END DATE: CONTINUES
  9. LORAZEPAM [Concomitant]
     Active Substance: LORAZEPAM
     Indication: Insomnia
     Dosage: DOSE: ONE AT NIGHT; START DATE: SOME TIME AGO; END DATE: CONTINUES
  10. ZOLPIDEM [Concomitant]
     Active Substance: ZOLPIDEM TARTRATE
     Indication: Insomnia
     Dosage: DOSE: ONE AT NIGHT; START DATE: SOME TIME AGO; END DATE: CONTINUES

REACTIONS (4)
  - Fatigue [Not Recovered/Not Resolved]
  - Restlessness [Not Recovered/Not Resolved]
  - Malaise [Not Recovered/Not Resolved]
  - Headache [Recovered/Resolved]

NARRATIVE: CASE EVENT DATE: 20250611
